FAERS Safety Report 18971049 (Version 2)
Quarter: 2022Q3

REPORT INFORMATION
  Report Type: Spontaneous
  Country: US (occurrence: US)
  Receive Date: 20210305
  Receipt Date: 20220913
  Transmission Date: 20221027
  Serious: Yes (Other)
  Sender: FDA-Public Use
  Company Number: US-SA-SAC00000000273637

PATIENT
  Age: 49 Year
  Sex: Female

DRUGS (1)
  1. ZANTAC [Suspect]
     Active Substance: RANITIDINE HYDROCHLORIDE
     Indication: Dyspepsia
     Dosage: 150 MG, QD
     Dates: start: 201305, end: 201807

REACTIONS (1)
  - Colorectal cancer stage IV [Not Recovered/Not Resolved]

NARRATIVE: CASE EVENT DATE: 20180430
